FAERS Safety Report 24766961 (Version 1)
Quarter: 2024Q4

REPORT INFORMATION
  Report Type: Spontaneous
  Country: US (occurrence: US)
  Receive Date: 20241223
  Receipt Date: 20241223
  Transmission Date: 20250115
  Serious: No
  Sender: MERZ
  Company Number: US-MRZWEB-2024120000171

PATIENT

DRUGS (1)
  1. XEOMIN [Suspect]
     Active Substance: INCOBOTULINUMTOXINA
     Indication: Torticollis
     Dosage: 300 INTERNATIONAL UNIT
     Route: 030

REACTIONS (1)
  - Overdose [Unknown]
